FAERS Safety Report 13363388 (Version 4)
Quarter: 2020Q2

REPORT INFORMATION
  Report Type: Report from Study
  Country: US (occurrence: US)
  Receive Date: 20170323
  Receipt Date: 20200429
  Transmission Date: 20200713
  Serious: Yes (Life-Threatening, Hospitalization, Other)
  Sender: FDA-Public Use
  Company Number: PHHO2014US017944

PATIENT
  Age: 66 Year
  Sex: Male
  Weight: 117.5 kg

DRUGS (7)
  1. VANCOMYCIN [Concomitant]
     Active Substance: VANCOMYCIN
     Indication: INFECTION PROPHYLAXIS
     Dosage: 2000 MG, QD
     Route: 042
     Dates: start: 20140717, end: 20140721
  2. ONDANSETRON [Concomitant]
     Active Substance: ONDANSETRON
     Indication: NAUSEA
     Dosage: 4 MG, PRN
     Route: 042
     Dates: start: 20140717, end: 20140724
  3. METRONIDAZOLE. [Concomitant]
     Active Substance: METRONIDAZOLE
     Indication: INFECTION PROPHYLAXIS
     Dosage: 500 MG, Q3D
     Route: 042
     Dates: start: 20140717, end: 20140721
  4. PREDNISONE. [Concomitant]
     Active Substance: PREDNISONE
     Indication: PYREXIA
     Dosage: 10 MG, QD
     Route: 048
     Dates: start: 20140717
  5. GSK2118436 [Suspect]
     Active Substance: DABRAFENIB
     Indication: MALIGNANT MELANOMA
     Dosage: 150 MG, BID
     Route: 048
     Dates: start: 20140618, end: 20140714
  6. GSK1120212 [Suspect]
     Active Substance: TRAMETINIB
     Indication: MALIGNANT MELANOMA
     Dosage: 2 MG, QD (^1D^)
     Route: 048
     Dates: start: 20140618, end: 20140714
  7. AZTREONAM. [Concomitant]
     Active Substance: AZTREONAM
     Indication: INFECTION PROPHYLAXIS
     Dosage: 500 MG, Q3D
     Route: 042
     Dates: start: 20140717, end: 20140721

REACTIONS (4)
  - Acute kidney injury [Recovered/Resolved]
  - Troponin increased [Recovered/Resolved]
  - Blood creatine phosphokinase increased [Recovered/Resolved]
  - Rhabdomyolysis [Recovered/Resolved]

NARRATIVE: CASE EVENT DATE: 20140716
